FAERS Safety Report 18489936 (Version 1)
Quarter: 2020Q4

REPORT INFORMATION
  Report Type: Spontaneous
  Country: FR (occurrence: FR)
  Receive Date: 20201111
  Receipt Date: 20201111
  Transmission Date: 20210114
  Serious: Yes (Hospitalization)
  Sender: FDA-Public Use
  Company Number: FR-GLAXOSMITHKLINE-FR2020222638

PATIENT
  Age: 91 Year
  Sex: Male
  Weight: 73 kg

DRUGS (6)
  1. SCOPODERM TTS [Suspect]
     Active Substance: SCOPOLAMINE
     Indication: VOMITING
     Dosage: 1 DF
     Route: 062
     Dates: start: 20200907, end: 20201008
  2. METOCLOPRAMIDE. [Suspect]
     Active Substance: METOCLOPRAMIDE
     Indication: VOMITING
     Dosage: 15 MG, QD
     Route: 048
     Dates: start: 20201001, end: 20201008
  3. FUROSEMIDE. [Concomitant]
     Active Substance: FUROSEMIDE
     Indication: HYPERTENSION
     Dosage: 40 MG, QD
     Route: 048
  4. BISOCE [Concomitant]
     Active Substance: BISOPROLOL
     Indication: ARRHYTHMIA
     Dosage: 1 DF, QD
     Route: 048
  5. ELIQUIS [Concomitant]
     Active Substance: APIXABAN
     Indication: CARDIOVASCULAR EVENT PROPHYLAXIS
     Dosage: 5 MG, QD
     Route: 048
  6. LANSOPRAZOLE. [Concomitant]
     Active Substance: LANSOPRAZOLE
     Indication: GASTROOESOPHAGEAL REFLUX DISEASE
     Dosage: 30 MG, QD
     Route: 048

REACTIONS (3)
  - Confusional state [Recovered/Resolved]
  - Dysarthria [Recovered/Resolved]
  - Dyskinesia [Recovered/Resolved]

NARRATIVE: CASE EVENT DATE: 20201008
